FAERS Safety Report 7840965-9 (Version None)
Quarter: 2011Q4

REPORT INFORMATION
  Report Type: 
  Country: None (occurrence: None)
  Receive Date: 20111021
  Receipt Date: 20111021
  Transmission Date: 20120403
  Serious: Yes (Other)
  Sender: FDA-Public Use
  Company Number: None

PATIENT
  Age: 64 Year
  Sex: Female
  Weight: 56.6996 kg

DRUGS (1)
  1. SYMBICORT [Suspect]
     Indication: ASTHMA
     Dosage: 2 PUFFS AM/PM INHALER
     Route: 055
     Dates: start: 20101001, end: 20110801

REACTIONS (4)
  - THIRST [None]
  - MUSCLE SPASMS [None]
  - TREMOR [None]
  - POLLAKIURIA [None]
